FAERS Safety Report 7043795-3 (Version None)
Quarter: 2010Q4

REPORT INFORMATION
  Report Type: 
  Country: None (occurrence: None)
  Receive Date: 20101008
  Receipt Date: 20101008
  Transmission Date: 20110411
  Serious: Yes (Other)
  Sender: FDA-Public Use
  Company Number: None

PATIENT
  Age: 33 Year
  Sex: Male
  Weight: 59.4212 kg

DRUGS (1)
  1. WELLBUTRIN [Suspect]
     Dosage: 150 XL ONCE DAILY

REACTIONS (2)
  - ABNORMAL BEHAVIOUR [None]
  - ADVERSE DRUG REACTION [None]
